FAERS Safety Report 24933647 (Version 1)
Quarter: 2025Q1

REPORT INFORMATION
  Report Type: Spontaneous
  Country: GB (occurrence: GB)
  Receive Date: 20250206
  Receipt Date: 20250206
  Transmission Date: 20250408
  Serious: Yes (Hospitalization)
  Sender: EXELIXIS
  Company Number: GB-IPSEN Group, Research and Development-2023-28441

PATIENT
  Age: 16 Year
  Sex: Female
  Weight: 104 kg

DRUGS (6)
  1. CABOMETYX [Suspect]
     Active Substance: CABOZANTINIB S-MALATE
     Indication: Synovial sarcoma
     Dosage: 60 MG, QD
     Route: 048
     Dates: start: 20231208
  2. CABOMETYX [Suspect]
     Active Substance: CABOZANTINIB S-MALATE
     Indication: Off label use
     Route: 065
     Dates: start: 20240119
  3. CABOMETYX [Suspect]
     Active Substance: CABOZANTINIB S-MALATE
     Route: 065
     Dates: start: 20240124
  4. METFORMIN [Concomitant]
     Active Substance: METFORMIN HYDROCHLORIDE
     Indication: Glucose tolerance impaired
     Dosage: 500 MG, QD
     Route: 048
     Dates: end: 202405
  5. UREA [Concomitant]
     Active Substance: UREA
     Indication: Skin disorder
     Route: 061
  6. CERAVE HEALING [Concomitant]
     Active Substance: PETROLATUM
     Indication: Skin disorder
     Route: 061

REACTIONS (8)
  - Blister [Recovered/Resolved]
  - Palmar-plantar erythrodysaesthesia syndrome [Recovering/Resolving]
  - Pain in extremity [Recovering/Resolving]
  - Blister [Unknown]
  - Dry skin [Unknown]
  - Alanine aminotransferase increased [Not Recovered/Not Resolved]
  - Off label use [Unknown]
  - Off label use [Unknown]

NARRATIVE: CASE EVENT DATE: 20231208
